FAERS Safety Report 4986554-5 (Version None)
Quarter: 2006Q2

REPORT INFORMATION
  Report Type: 
  Country: None (occurrence: None)
  Receive Date: 20060424
  Receipt Date: 20060410
  Transmission Date: 20061013
  Serious: Yes (Death, Hospitalization, Other)
  Sender: FDA-Public Use
  Company Number: HQWYE590025AUG04

PATIENT
  Age: 77 Year
  Sex: Female
  Weight: 59.02 kg

DRUGS (7)
  1. PREMPRO [Suspect]
     Indication: HORMONE REPLACEMENT THERAPY
  2. CLIMARA [Suspect]
     Indication: HORMONE REPLACEMENT THERAPY
  3. FEMHRT [Suspect]
     Indication: HORMONE REPLACEMENT THERAPY
  4. MEDROXYPROGESTERONE [Suspect]
     Indication: HORMONE REPLACEMENT THERAPY
  5. PREMARIN [Suspect]
  6. PROVERA [Suspect]
  7. VAGIFEM [Suspect]
     Indication: HORMONE REPLACEMENT THERAPY

REACTIONS (18)
  - APPENDIX DISORDER [None]
  - ASPIRATION [None]
  - CARDIAC ARREST [None]
  - COLONIC FISTULA [None]
  - ENDOMETRIAL CANCER METASTATIC [None]
  - FALLOPIAN TUBE CANCER METASTATIC [None]
  - GENITAL NEOPLASM MALIGNANT FEMALE [None]
  - METASTASES TO LARGE INTESTINE [None]
  - METASTASES TO OVARY [None]
  - METASTASES TO REPRODUCTIVE ORGAN [None]
  - METASTASES TO SOFT TISSUE [None]
  - METASTASIS [None]
  - MULTI-ORGAN FAILURE [None]
  - NAUSEA [None]
  - OVARIAN EPITHELIAL CANCER [None]
  - POST PROCEDURAL COMPLICATION [None]
  - RESPIRATORY ARREST [None]
  - VOMITING [None]
